FAERS Safety Report 7949893-1 (Version None)
Quarter: 2011Q4

REPORT INFORMATION
  Report Type: 
  Country: None (occurrence: None)
  Receive Date: 20111130
  Receipt Date: 20111125
  Transmission Date: 20120403
  Serious: Yes (Death, Life-Threatening, Hospitalization)
  Sender: FDA-Public Use
  Company Number: JP-PFIZER INC-2011288909

PATIENT
  Age: 78 Year
  Sex: Male
  Weight: 65 kg

DRUGS (6)
  1. OXYCONTIN [Concomitant]
     Indication: RENAL CELL CARCINOMA
     Dosage: 10 MG, 2X/DAY
     Route: 048
     Dates: end: 20110516
  2. ETODOLAC [Concomitant]
     Indication: RENAL CELL CARCINOMA
     Dosage: 200 MG, 2X/DAY
     Route: 048
  3. POLARAMINE [Concomitant]
     Indication: PROPHYLAXIS
     Dosage: 5 MG, 1X/DAY
     Route: 042
     Dates: start: 20110517
  4. OXYCONTIN [Concomitant]
     Dosage: 15 MG, 2X/DAY
     Route: 048
     Dates: start: 20110517, end: 20110525
  5. TEMSIROLIMUS [Suspect]
     Indication: RENAL CELL CARCINOMA
     Dosage: 25 MG, UNK
     Route: 042
     Dates: start: 20110517, end: 20110810
  6. PROCHLORPERAZINE [Concomitant]
     Dosage: 5 MG, 3X/DAY
     Route: 048
     Dates: end: 20110615

REACTIONS (3)
  - PNEUMONIA BACTERIAL [None]
  - ACUTE MYOCARDIAL INFARCTION [None]
  - DEATH [None]
